FAERS Safety Report 8185368-5 (Version None)
Quarter: 2012Q1

REPORT INFORMATION
  Report Type: 
  Country: None (occurrence: None)
  Receive Date: 20120305
  Receipt Date: 20120227
  Transmission Date: 20120608
  Serious: Yes (Hospitalization)
  Sender: FDA-Public Use
  Company Number: PHHY2012NL016970

PATIENT

DRUGS (2)
  1. AMOXICILLIN [Suspect]
     Indication: BLOOD PRESSURE INCREASED
  2. AMOXICILLIN [Suspect]
     Indication: COUGH
     Dosage: 1 DF, TID
     Route: 048
     Dates: start: 20120105, end: 20120105

REACTIONS (5)
  - CONFUSIONAL STATE [None]
  - SPEECH DISORDER [None]
  - DISORIENTATION [None]
  - FATIGUE [None]
  - DIZZINESS [None]
